FAERS Safety Report 4608579-1 (Version None)
Quarter: 2005Q1

REPORT INFORMATION
  Report Type: 
  Country: None (occurrence: None)
  Receive Date: 20050315
  Receipt Date: 20050204
  Transmission Date: 20050727
  Serious: Yes (Hospitalization)
  Sender: FDA-Public Use
  Company Number: PHHO2005US02413

PATIENT
  Age: 53 Year
  Sex: Female
  Weight: 73 kg

DRUGS (1)
  1. TEGASEROD [Suspect]
     Indication: DYSPEPSIA
     Dosage: 6 MG, BID
     Route: 048
     Dates: start: 20041130, end: 20050203

REACTIONS (3)
  - ABDOMINAL PAIN [None]
  - DIVERTICULITIS [None]
  - NEPHROLITHIASIS [None]
